FAERS Safety Report 6265210-X (Version None)
Quarter: 2009Q3

REPORT INFORMATION
  Report Type: 
  Country: None (occurrence: None)
  Receive Date: 20090713
  Receipt Date: 20090629
  Transmission Date: 20100115
  Serious: Yes (Hospitalization)
  Sender: FDA-Public Use
  Company Number: RU-ROCHE-640918

PATIENT
  Sex: Female
  Weight: 57 kg

DRUGS (5)
  1. RIBAVIRIN [Suspect]
     Route: 048
     Dates: start: 20081121, end: 20090605
  2. RIBAVIRIN [Suspect]
     Route: 048
     Dates: start: 20090619
  3. PEG-INTERFERON ALFA 2A (RO 25-8310) [Suspect]
     Dosage: DOSAGE FORM REPORTED AS LIQUID
     Route: 058
     Dates: start: 20081121, end: 20090605
  4. PEG-INTERFERON ALFA 2A (RO 25-8310) [Suspect]
     Route: 058
     Dates: start: 20090619
  5. LEVOTHYROXINE SODIUM [Concomitant]
     Dates: start: 20090522

REACTIONS (1)
  - RENAL IMPAIRMENT [None]
